FAERS Safety Report 19814025 (Version 1)
Quarter: 2021Q3

REPORT INFORMATION
  Report Type: Spontaneous
  Country: US (occurrence: US)
  Receive Date: 20210909
  Receipt Date: 20210909
  Transmission Date: 20211014
  Serious: No
  Sender: FDA-Public Use
  Company Number: US-BAUSCH-BL-2021-027342

PATIENT
  Sex: Female
  Weight: 62.65 kg

DRUGS (2)
  1. ELIDEL [Suspect]
     Active Substance: PIMECROLIMUS
     Indication: RASH
     Route: 061
  2. ELIDEL [Suspect]
     Active Substance: PIMECROLIMUS
     Route: 061

REACTIONS (2)
  - Therapeutic product effect incomplete [Unknown]
  - Expired product administered [Unknown]
